FAERS Safety Report 4358187-5 (Version None)
Quarter: 2004Q2

REPORT INFORMATION
  Report Type: 
  Country: None (occurrence: None)
  Receive Date: 20040513
  Receipt Date: 20040513
  Transmission Date: 20050107
  Serious: No
  Sender: FDA-Public Use
  Company Number: None

PATIENT
  Age: 66 Year
  Sex: Female
  Weight: 64 kg

DRUGS (6)
  1. XIGRIS [Suspect]
     Indication: PNEUMOCOCCAL SEPSIS
     Dosage: 24 MCG/ KG/ HR INTRAVENOUS
     Route: 042
     Dates: start: 20040220, end: 20040222
  2. HEPARIN [Suspect]
     Indication: DISSEMINATED INTRAVASCULAR COAGULATION
     Dosage: 600 UNITS/HR INTRAVENOUS
     Route: 042
     Dates: start: 20040222, end: 20040222
  3. TEQUIN [Concomitant]
  4. AZACTAM [Concomitant]
  5. CLINDAMYCIN HCL [Concomitant]
  6. VANCOMYCIN [Concomitant]

REACTIONS (7)
  - ANGIOPATHY [None]
  - CEREBRAL INFARCTION [None]
  - CEREBROVASCULAR DISORDER [None]
  - DIALYSIS [None]
  - DISSEMINATED INTRAVASCULAR COAGULATION [None]
  - HAEMORRHAGE [None]
  - SUBDURAL HAEMATOMA [None]
